FAERS Safety Report 8392682-7 (Version None)
Quarter: 2012Q2

REPORT INFORMATION
  Report Type: 
  Country: None (occurrence: None)
  Receive Date: 20120529
  Receipt Date: 20120517
  Transmission Date: 20120825
  Serious: No
  Sender: FDA-Public Use
  Company Number: US-BAYER-2012-052017

PATIENT
  Age: 74 Year
  Sex: Female
  Weight: 52 kg

DRUGS (3)
  1. HYDROCODONE BITARTRATE + ACETAMINOPHEN [Concomitant]
  2. LUMIGAN [Concomitant]
  3. NAPROXEN SODIUM [Suspect]
     Indication: ARTHRITIS
     Dosage: 1 UNIT THREE TIMES DAILY
     Dates: start: 20110901

REACTIONS (3)
  - INCREASED BRONCHIAL SECRETION [None]
  - NO ADVERSE EVENT [None]
  - COUGH [None]
